FAERS Safety Report 6716937-4 (Version None)
Quarter: 2010Q2

REPORT INFORMATION
  Report Type: 
  Country: None (occurrence: None)
  Receive Date: 20100504
  Receipt Date: 20100414
  Transmission Date: 20101027
  Serious: Yes (Hospitalization)
  Sender: FDA-Public Use
  Company Number: 7001450

PATIENT
  Age: 16 Year
  Sex: Female

DRUGS (3)
  1. REBIF [Suspect]
     Indication: MULTIPLE SCLEROSIS
     Dosage: 44 MCG, 3 IN 1 WK, SUBCUTANEOUS
     Route: 058
     Dates: start: 20090505
  2. TYLENOL (PARACETAMOL) [Concomitant]
  3. MOTRIN [Concomitant]

REACTIONS (5)
  - BACK PAIN [None]
  - CYSTITIS [None]
  - OFF LABEL USE [None]
  - PNEUMONIA [None]
  - PULMONARY EMBOLISM [None]
